FAERS Safety Report 24243440 (Version 1)
Quarter: 2024Q3

REPORT INFORMATION
  Report Type: Spontaneous
  Country: EG (occurrence: EG)
  Receive Date: 20240823
  Receipt Date: 20240823
  Transmission Date: 20241017
  Serious: Yes (Other)
  Sender: AMGEN
  Company Number: EG-PFIZER INC-PV202400107728

PATIENT
  Age: 50 Year
  Sex: Female

DRUGS (11)
  1. ENBREL [Suspect]
     Active Substance: BENZYL ALCOHOL\ETANERCEPT
     Indication: Rheumatoid arthritis
     Dosage: 50 MG, WEEKLY
     Route: 058
     Dates: start: 20240122
  2. FLACORT [Concomitant]
     Dosage: 6 MG, 2 TABS AFTER DINNER
     Route: 065
  3. LEFLUNOMIDE [Concomitant]
     Active Substance: LEFLUNOMIDE
     Dosage: 20 MG, ONE TAB AFTER LUNCH
     Route: 065
  4. METHOTREXATE [Concomitant]
     Active Substance: METHOTREXATE
     Dosage: 12.5 MG, WEEKLY (EVERY MONDAY)
     Route: 065
  5. FOLIC ACID [Concomitant]
     Active Substance: FOLIC ACID
     Dosage: 5 MG, 2X/WEEK (2 TABS EVERY THURSDAY)
     Route: 065
  6. PANTOPRAZOLE SODIUM [Concomitant]
     Active Substance: PANTOPRAZOLE SODIUM
     Dosage: 40 MG, ONE TAB BEFORE DINNER WITH ONE HOUR
     Route: 065
  7. BONECARE [Concomitant]
     Dosage: 1 MCG, ONE CAP AFTER BREAKFAST
     Route: 065
  8. CHONDROITIN SULFATE (BOVINE)\DIMETHYL SULFONE\GLUCOSAMINE SULFATE [Concomitant]
     Active Substance: CHONDROITIN SULFATE (BOVINE)\DIMETHYL SULFONE\GLUCOSAMINE SULFATE
     Dosage: (ONE TAB AFTER LUNCH)
     Route: 065
  9. GLUCOPHAGE [Concomitant]
     Active Substance: METFORMIN HYDROCHLORIDE
     Dosage: 500 MG, ONE TAB MORNING AND EVENING
     Route: 065
  10. Betolvex [Concomitant]
     Dosage: UNK UNK, CYCLIC (ONE AMP EVERY 2 WEEKS)
     Route: 065
  11. Sharkilage plus [Concomitant]
     Dosage: ONE CAP AFTER DINNER
     Route: 065

REACTIONS (1)
  - Breast cancer [Unknown]
